FAERS Safety Report 23729086 (Version 1)
Quarter: 2024Q2

REPORT INFORMATION
  Report Type: Spontaneous
  Country: CA (occurrence: CA)
  Receive Date: 20240410
  Receipt Date: 20240410
  Transmission Date: 20240716
  Serious: Yes (Life-Threatening, Other)
  Sender: FDA-Public Use
  Company Number: CA-TEVA-VS-3180032

PATIENT
  Age: 3 Year
  Sex: Female

DRUGS (3)
  1. ETOPOSIDE [Suspect]
     Active Substance: ETOPOSIDE
     Indication: Juvenile chronic myelomonocytic leukaemia
     Dosage: TIME INTERVAL: CYCLICAL
     Route: 065
  2. CYTARABINE [Suspect]
     Active Substance: CYTARABINE
     Indication: Juvenile chronic myelomonocytic leukaemia
     Dosage: TIME INTERVAL: CYCLICAL: POWDER FOR SOLUTION INTRATHECAL
     Route: 065
  3. DAUNORUBICIN HYDROCHLORIDE [Suspect]
     Active Substance: DAUNORUBICIN HYDROCHLORIDE
     Indication: Juvenile chronic myelomonocytic leukaemia
     Dosage: TIME INTERVAL: CYCLICAL
     Route: 065

REACTIONS (2)
  - Neutropenia [Unknown]
  - Necrotising fasciitis [Unknown]
